FAERS Safety Report 4947059-0 (Version None)
Quarter: 2006Q1

REPORT INFORMATION
  Report Type: 
  Country: None (occurrence: None)
  Receive Date: 20060317
  Receipt Date: 20051121
  Transmission Date: 20060701
  Serious: Yes (Hospitalization)
  Sender: FDA-Public Use
  Company Number: HQWYE692823NOV05

PATIENT
  Sex: Female

DRUGS (16)
  1. ENBREL [Suspect]
     Indication: RHEUMATOID ARTHRITIS
     Route: 058
     Dates: start: 20050826, end: 20060210
  2. ENBREL [Suspect]
     Route: 058
     Dates: start: 20060127, end: 20060210
  3. PREDONINE [Concomitant]
     Dosage: UNKNOWN, TAB
     Route: 048
  4. POLAPREZINC [Concomitant]
     Dosage: UNKNOWN, GRA
     Route: 048
  5. ALENDRONATE SODIUM [Concomitant]
     Dosage: UNKNOWN, TAB
     Route: 048
     Dates: start: 20050909
  6. ALENDRONATE SODIUM [Concomitant]
     Route: 048
     Dates: start: 20050909
  7. PENTASA [Concomitant]
     Dosage: UNKNOWN, TAB
     Route: 048
  8. ZANTAC [Concomitant]
     Dosage: UNKNOWN,TAB
     Route: 048
  9. VOLTAREN [Concomitant]
     Dosage: UNKNOWN, TAB
     Route: 048
  10. LIMAPROST [Concomitant]
     Dosage: UNKNOWN, TAB
     Route: 048
     Dates: start: 20050909
  11. MUCOSTA [Concomitant]
     Route: 048
     Dates: start: 20050909
  12. MAGNESIUM OXIDE [Concomitant]
     Route: 065
     Dates: start: 20050930
  13. BETAMETHASONE VALERATE [Concomitant]
     Route: 065
  14. GENTAMICIN SULFATE [Concomitant]
     Route: 065
  15. DEXAMETHASONE TAB [Concomitant]
     Route: 065
  16. XYLOCAINE [Concomitant]
     Route: 065

REACTIONS (1)
  - ACUTE ABDOMEN [None]
